FAERS Safety Report 15950474 (Version 1)
Quarter: 2019Q1

REPORT INFORMATION
  Report Type: Report from Study
  Country: CA (occurrence: CA)
  Receive Date: 20190212
  Receipt Date: 20190212
  Transmission Date: 20190417
  Serious: Yes (Life-Threatening, Hospitalization, Disabling)
  Sender: FDA-Public Use
  Company Number: CA-JNJFOC-20181110178

PATIENT
  Age: 21 Year
  Sex: Male
  Weight: 56.25 kg

DRUGS (1)
  1. REMICADE [Suspect]
     Active Substance: INFLIXIMAB
     Indication: CROHN^S DISEASE
     Dosage: ALSO GIVEN AS 700 MG ONCE IN EIGHT WEEKS
     Route: 042
     Dates: start: 20170425

REACTIONS (2)
  - Inappropriate schedule of product administration [Unknown]
  - Abdominal abscess [Not Recovered/Not Resolved]

NARRATIVE: CASE EVENT DATE: 20181026
